FAERS Safety Report 4811387-X (Version None)
Quarter: 2005Q4

REPORT INFORMATION
  Report Type: 
  Country: None (occurrence: None)
  Receive Date: 20051026
  Receipt Date: 20051026
  Transmission Date: 20060501
  Serious: Yes (Hospitalization)
  Sender: FDA-Public Use
  Company Number: None

PATIENT
  Age: 72 Year
  Sex: Female
  Weight: 103 kg

DRUGS (1)
  1. COUMADIN [Suspect]
     Indication: DEEP VEIN THROMBOSIS
     Dosage: PO
     Route: 048
     Dates: start: 20051010, end: 20051015

REACTIONS (7)
  - COAGULOPATHY [None]
  - ERYTHEMA [None]
  - EXTRAVASATION [None]
  - PAIN OF SKIN [None]
  - SKIN NECROSIS [None]
  - SKIN NODULE [None]
  - THROMBOSIS [None]
